FAERS Safety Report 8737294 (Version 3)
Quarter: 2012Q4

REPORT INFORMATION
  Report Type: 
  Country: US (occurrence: US)
  Receive Date: 20120822
  Receipt Date: 20121025
  Transmission Date: 20130627
  Serious: Yes (Other)
  Sender: FDA-Public Use
  Company Number: US-ASTRAZENECA-2012SE59922

PATIENT
  Age: 57 Year
  Sex: Female
  Weight: 66.7 kg

DRUGS (19)
  1. NEXIUM [Suspect]
     Route: 048
  2. CRESTOR [Suspect]
     Route: 048
  3. ASPIRIN [Concomitant]
  4. CALCIUM + D [Concomitant]
     Dosage: 600-400 MG-UNIT ONCE A DAY
  5. CELEXA [Concomitant]
  6. CLONAZEPAM [Concomitant]
  7. CLOZAPINE [Concomitant]
  8. COLESTIPOL HCL [Concomitant]
  9. COQ-10 [Concomitant]
  10. CVS VITAMIN E [Concomitant]
  11. CYMBALTA [Concomitant]
  12. DURAGESIC [Concomitant]
     Dosage: 75 MCG/HR PT72 AS DIRECTED, ONE PATCH EVERY THREE DAYS
  13. MELATONIN [Concomitant]
  14. MIRALAX [Concomitant]
  15. NORCO [Concomitant]
     Dosage: 10-325 MG, ONE EVERY SIX HOURS
  16. OXYBUTYNIN CHLORIDE [Concomitant]
  17. RECLAST [Concomitant]
     Dosage: 5 MG/100 ML, AS DIRECTED
  18. REMERON [Concomitant]
  19. TEMAZEPAM [Concomitant]

REACTIONS (16)
  - Breast cancer [Unknown]
  - Osteoporosis [Unknown]
  - Oesophageal oedema [Unknown]
  - Lipid metabolism disorder [Unknown]
  - Mitral valve disease [Unknown]
  - Pain [Unknown]
  - Age-related macular degeneration [Unknown]
  - Osteoarthritis [Unknown]
  - Rheumatic disorder [Unknown]
  - Vitamin D deficiency [Unknown]
  - Back pain [Unknown]
  - Skin papilloma [Unknown]
  - Pain [Unknown]
  - Headache [Unknown]
  - Constipation [Unknown]
  - Depression [Unknown]
